FAERS Safety Report 21467226 (Version 1)
Quarter: 2022Q4

REPORT INFORMATION
  Report Type: Spontaneous
  Country: US (occurrence: US)
  Receive Date: 20221017
  Receipt Date: 20221017
  Transmission Date: 20230112
  Serious: Yes (Other)
  Sender: FDA-Public Use
  Company Number: US-FreseniusKabi-FK202213907

PATIENT
  Age: 21 Year
  Sex: Male
  Weight: 48.5 kg

DRUGS (1)
  1. SMOFLIPID [Suspect]
     Active Substance: FISH OIL\MEDIUM-CHAIN TRIGLYCERIDES\OLIVE OIL\SOYBEAN OIL
     Indication: Nutritional supplementation
     Dosage: 1.2G PER KG, DAILY, OVER 12 HOURS, ONGOING
     Route: 042
     Dates: start: 202107

REACTIONS (1)
  - Parenteral nutrition associated liver disease [Not Recovered/Not Resolved]

NARRATIVE: CASE EVENT DATE: 20221006
